FAERS Safety Report 6529619-9 (Version None)
Quarter: 2010Q1

REPORT INFORMATION
  Report Type: 
  Country: None (occurrence: None)
  Receive Date: 20100107
  Receipt Date: 20091228
  Transmission Date: 20100710
  Serious: Yes (Hospitalization)
  Sender: FDA-Public Use
  Company Number: FR-SANOFI-AVENTIS-2009SA011812

PATIENT
  Age: 0 Day
  Sex: Male
  Weight: 2 kg

DRUGS (8)
  1. STILNOX [Suspect]
     Route: 064
  2. STILNOX [Suspect]
     Route: 064
     Dates: start: 20080708, end: 20080708
  3. TERCIAN [Suspect]
     Route: 064
     Dates: end: 20080724
  4. TERCIAN [Suspect]
     Route: 064
     Dates: start: 20080708, end: 20080708
  5. TEMESTA [Suspect]
     Dosage: DOSE:0.5 UNIT(S)
     Route: 064
     Dates: end: 20080724
  6. TEMESTA [Suspect]
     Dosage: DOSE:15 UNIT(S)
     Route: 064
     Dates: start: 20080708, end: 20080708
  7. LAMICTAL [Suspect]
     Route: 064
     Dates: end: 20080724
  8. SERESTA [Concomitant]

REACTIONS (6)
  - APNOEA [None]
  - DRUG EXPOSURE DURING PREGNANCY [None]
  - GASTROOESOPHAGEAL REFLUX DISEASE [None]
  - NEONATAL RESPIRATORY DISTRESS SYNDROME [None]
  - PREMATURE BABY [None]
  - VENTRICULAR SEPTAL DEFECT [None]
